FAERS Safety Report 10707620 (Version 3)
Quarter: 2015Q2

REPORT INFORMATION
  Report Type: Report from Study
  Country: US (occurrence: US)
  Receive Date: 20150113
  Receipt Date: 20150423
  Transmission Date: 20150821
  Serious: Yes (Other)
  Sender: FDA-Public Use
  Company Number: US-SA-2014SA141154

PATIENT
  Age: 48 Year
  Sex: Female

DRUGS (3)
  1. AUBAGIO [Suspect]
     Active Substance: TERIFLUNOMIDE
     Indication: MULTIPLE SCLEROSIS
     Route: 048
     Dates: start: 20141001
  2. SOLU-MEDROL [Concomitant]
     Active Substance: METHYLPREDNISOLONE SODIUM SUCCINATE
     Dates: start: 201403
  3. NEURONTIN [Concomitant]
     Active Substance: GABAPENTIN

REACTIONS (24)
  - Vaginal haemorrhage [Unknown]
  - Loose associations [Unknown]
  - Headache [Unknown]
  - Dizziness [Recovering/Resolving]
  - Disorientation [Recovering/Resolving]
  - Nausea [Unknown]
  - Toothache [Recovering/Resolving]
  - Menstruation irregular [Unknown]
  - Chest pain [Unknown]
  - Memory impairment [Unknown]
  - Uterine mass [Unknown]
  - Colitis [Recovering/Resolving]
  - Dyspnoea [Recovering/Resolving]
  - Fatigue [Unknown]
  - Depression [Unknown]
  - Alopecia [Unknown]
  - Gingival recession [Unknown]
  - Affective disorder [Unknown]
  - Agitation [Unknown]
  - Migraine [Unknown]
  - Fall [Unknown]
  - Pruritus [Unknown]
  - Anger [Unknown]
  - Visual impairment [Unknown]

NARRATIVE: CASE EVENT DATE: 2014
